FAERS Safety Report 6125148-5 (Version None)
Quarter: 2009Q1

REPORT INFORMATION
  Report Type: 
  Country: None (occurrence: None)
  Receive Date: 20090317
  Receipt Date: 20090302
  Transmission Date: 20090719
  Serious: Yes (Hospitalization)
  Sender: FDA-Public Use
  Company Number: 2009000647

PATIENT
  Age: 74 Year
  Sex: Female

DRUGS (13)
  1. TARCEVA [Suspect]
     Indication: NON-SMALL CELL LUNG CANCER
     Dosage: 100 MG, QOD, ORAL
     Route: 048
     Dates: start: 20090109, end: 20090227
  2. TOPROL-XL [Concomitant]
  3. CALCIUM (CALCIUM) [Concomitant]
  4. MEGESTROL ACETATE [Concomitant]
  5. EYE CAP [Concomitant]
  6. ASPIRIN [Concomitant]
  7. CYMBALTA [Concomitant]
  8. FOSINOPRIL SODIUM [Concomitant]
  9. VITAMIN B12 [Concomitant]
  10. OXYCODONE HCL [Concomitant]
  11. LIPITOR [Concomitant]
  12. ZOCOR [Concomitant]
  13. RADIATION [Concomitant]

REACTIONS (6)
  - ANAEMIA [None]
  - DIARRHOEA [None]
  - HYPOTENSION [None]
  - RASH [None]
  - RASH GENERALISED [None]
  - TACHYCARDIA [None]
